FAERS Safety Report 8389201-8 (Version None)
Quarter: 2012Q2

REPORT INFORMATION
  Report Type: 
  Country: None (occurrence: None)
  Receive Date: 20120528
  Receipt Date: 20120524
  Transmission Date: 20120825
  Serious: Yes (Death)
  Sender: FDA-Public Use
  Company Number: PHHY2012MX017612

PATIENT
  Age: 78 Year
  Sex: Female

DRUGS (5)
  1. LASIX [Concomitant]
     Indication: OEDEMA PERIPHERAL
     Dosage: 40 MG, QD
  2. CALCORT [Concomitant]
     Indication: PULMONARY FIBROSIS
     Dosage: 0.5 DF (UNK), UNK
     Dates: start: 20111101
  3. OXYGEN [Concomitant]
     Indication: PULMONARY FIBROSIS
  4. ASPIRIN [Concomitant]
     Indication: PULMONARY FIBROSIS
     Dosage: 1 DF, QD
  5. DIOVAN [Suspect]
     Indication: HYPERTENSION
     Dosage: 2 DF (80 MG), DAILY

REACTIONS (2)
  - MYOCARDIAL INFARCTION [None]
  - CARDIAC ARREST [None]
